FAERS Safety Report 4923466-7 (Version None)
Quarter: 2006Q1

REPORT INFORMATION
  Report Type: 
  Country: None (occurrence: None)
  Receive Date: 20060221
  Receipt Date: 20060208
  Transmission Date: 20060701
  Serious: Yes (Other)
  Sender: FDA-Public Use
  Company Number: 2006017941

PATIENT
  Age: 81 Year
  Sex: Female

DRUGS (3)
  1. DETROL LA [Suspect]
     Indication: MICTURITION URGENCY
     Dosage: 4 MG
     Dates: start: 19980101
  2. DETROL LA [Suspect]
     Indication: URINARY INCONTINENCE
     Dosage: 4 MG
     Dates: start: 19980101
  3. HYOSCYAMINE [Concomitant]

REACTIONS (5)
  - ADHESION [None]
  - DEAFNESS TRANSITORY [None]
  - HERNIA REPAIR [None]
  - INSOMNIA [None]
  - NOCTURIA [None]
